FAERS Safety Report 23837254 (Version 1)
Quarter: 2024Q2

REPORT INFORMATION
  Report Type: Spontaneous
  Country: RO (occurrence: RO)
  Receive Date: 20240509
  Receipt Date: 20240509
  Transmission Date: 20240715
  Serious: Yes (Death, Other)
  Sender: FDA-Public Use
  Company Number: RO-SUN PHARMACEUTICAL INDUSTRIES LTD-2024R1-445440

PATIENT
  Age: 68 Year
  Sex: Female

DRUGS (1)
  1. DECITABINE [Suspect]
     Active Substance: DECITABINE
     Indication: Acute myelomonocytic leukaemia
     Dosage: 20 MILLIGRAM/SQ. METER, DAILY
     Route: 065

REACTIONS (4)
  - Disease progression [Fatal]
  - Tumour lysis syndrome [Fatal]
  - Electrolyte imbalance [Fatal]
  - Multiple organ dysfunction syndrome [Fatal]
